FAERS Safety Report 7575486-4 (Version None)
Quarter: 2011Q2

REPORT INFORMATION
  Report Type: 
  Country: None (occurrence: None)
  Receive Date: 20110627
  Receipt Date: 20110614
  Transmission Date: 20111010
  Serious: Yes (Other)
  Sender: FDA-Public Use
  Company Number: PHHY2011HR51535

PATIENT
  Age: 70 Year
  Sex: Female

DRUGS (7)
  1. VENLAFAXINE [Suspect]
     Dosage: 150 MG, UNK
  2. VENLAFAXINE [Suspect]
     Indication: DEPRESSION
     Dosage: 75 MG, BID
  3. VENLAFAXINE [Suspect]
     Dosage: 225 MG, UNK
  4. VENLAFAXINE [Suspect]
     Dosage: 37.5 MG, UNK
  5. ALPRAZOLAM [Concomitant]
     Indication: DEPRESSION
     Dosage: 0.25 MG, IN THE EVENING
  6. NITRAZEPAM [Concomitant]
     Indication: DEPRESSION
  7. ALPRAZOLAM [Concomitant]
     Dosage: 1.5 MG/DAY

REACTIONS (13)
  - PALPITATIONS [None]
  - HYPERHIDROSIS [None]
  - BLOOD PRESSURE INCREASED [None]
  - BODY TEMPERATURE INCREASED [None]
  - ABASIA [None]
  - ASTHENIA [None]
  - HEART RATE INCREASED [None]
  - CEREBROVASCULAR ACCIDENT [None]
  - TRANSIENT ISCHAEMIC ATTACK [None]
  - DRUG WITHDRAWAL SYNDROME [None]
  - FEELING HOT [None]
  - VERTIGO [None]
  - NAUSEA [None]
